FAERS Safety Report 4386070-8 (Version None)
Quarter: 2004Q2

REPORT INFORMATION
  Report Type: 
  Country: None (occurrence: None)
  Receive Date: 20040610
  Receipt Date: 20030827
  Transmission Date: 20050107
  Serious: No
  Sender: FDA-Public Use
  Company Number: 2003UW09480

PATIENT
  Age: 50 Year
  Sex: Female
  Weight: 64.4108 kg

DRUGS (4)
  1. NEXIUM [Suspect]
     Dosage: 1 TAB QD PO
     Route: 048
     Dates: end: 20030401
  2. PRILOSEC [Suspect]
  3. ESTRATEST H.S. [Concomitant]
  4. AMITRIPTYLINE HCL [Concomitant]

REACTIONS (3)
  - GASTRIC POLYPS [None]
  - HIATUS HERNIA [None]
  - OESOPHAGEAL POLYP [None]
